FAERS Safety Report 4887579-0 (Version None)
Quarter: 2006Q1

REPORT INFORMATION
  Report Type: 
  Country: None (occurrence: None)
  Receive Date: 20060119
  Receipt Date: 20060119
  Transmission Date: 20060701
  Serious: Yes (Hospitalization)
  Sender: FDA-Public Use
  Company Number: None

PATIENT
  Age: 29 Year
  Sex: Male
  Weight: 89.3586 kg

DRUGS (3)
  1. TOPIRAMATE [Suspect]
     Dosage: 250 MG PO BID
     Route: 048
  2. QUETIAPINE [Suspect]
     Dosage: 300 MG QHS
  3. MIRTAZAPINE [Suspect]

REACTIONS (3)
  - CONVULSION [None]
  - HYPERTHERMIA [None]
  - SEROTONIN SYNDROME [None]
